FAERS Safety Report 12872510 (Version 2)
Quarter: 2016Q4

REPORT INFORMATION
  Report Type: Spontaneous
  Country: US (occurrence: US)
  Receive Date: 20161021
  Receipt Date: 20161202
  Transmission Date: 20170207
  Serious: Yes (Other)
  Sender: FDA-Public Use
  Company Number: US-BIOVITRUM-2016US0830

PATIENT
  Age: 21 Year
  Sex: Male

DRUGS (1)
  1. ANAKINRA [Suspect]
     Active Substance: ANAKINRA
     Indication: HISTIOCYTOSIS HAEMATOPHAGIC

REACTIONS (3)
  - Tendonitis [Recovered/Resolved]
  - Juvenile idiopathic arthritis [Recovered/Resolved]
  - Iridocyclitis [Recovered/Resolved]
